FAERS Safety Report 7889759-9 (Version None)
Quarter: 2011Q4

REPORT INFORMATION
  Report Type: 
  Country: None (occurrence: None)
  Receive Date: 20111103
  Receipt Date: 20111021
  Transmission Date: 20120403
  Serious: Yes (Death, Other)
  Sender: FDA-Public Use
  Company Number: GB-MYLANLABS-2011S1021987

PATIENT
  Age: 33 Year
  Sex: Male

DRUGS (5)
  1. HEROIN [Suspect]
     Dates: start: 20110101
  2. TEMAZEPAM [Suspect]
     Indication: PRODUCT USED FOR UNKNOWN INDICATION
     Route: 048
  3. HYOSCINE [Concomitant]
     Indication: SALIVARY HYPERSECRETION
     Route: 048
     Dates: start: 20101201
  4. METHADONE HCL [Suspect]
     Indication: DRUG DEPENDENCE
     Route: 048
     Dates: start: 20110101
  5. CLOZARIL [Suspect]
     Indication: SCHIZOPHRENIA
     Route: 048
     Dates: start: 20101026

REACTIONS (2)
  - DRUG ABUSE [None]
  - DEATH [None]
